FAERS Safety Report 19795069 (Version 1)
Quarter: 2021Q3

REPORT INFORMATION
  Report Type: Spontaneous
  Country: US (occurrence: US)
  Receive Date: 20210903
  Receipt Date: 20210903
  Transmission Date: 20211014
  Serious: Yes (Other)
  Sender: FDA-Public Use
  Company Number: None

PATIENT
  Age: 62 Year
  Sex: Female
  Weight: 75.8 kg

DRUGS (23)
  1. HEPARIN [Concomitant]
     Active Substance: HEPARIN SODIUM
     Dates: start: 20210819, end: 20210824
  2. NOREPINEPHRINE. [Concomitant]
     Active Substance: NOREPINEPHRINE
     Dates: start: 20210824, end: 20210826
  3. FAMOTIDINE. [Concomitant]
     Active Substance: FAMOTIDINE
     Dates: start: 20210819
  4. REMDESIVIR. [Concomitant]
     Active Substance: REMDESIVIR
     Dates: start: 20210820, end: 20210824
  5. OLUMIANT [Suspect]
     Active Substance: BARICITINIB
     Indication: OFF LABEL USE
     Route: 048
     Dates: start: 20210820, end: 20210829
  6. PROPOFOL. [Concomitant]
     Active Substance: PROPOFOL
     Dates: start: 20210824
  7. OXYCODONE [Concomitant]
     Active Substance: OXYCODONE
     Dates: start: 20210821
  8. CISATRACURIUM. [Concomitant]
     Active Substance: CISATRACURIUM
     Dates: start: 20210824, end: 20210901
  9. ENOXAPARIN [Concomitant]
     Active Substance: ENOXAPARIN
     Dates: start: 20210819
  10. GUAIFENESIN. [Concomitant]
     Active Substance: GUAIFENESIN
     Dates: start: 20210820, end: 20210824
  11. INSULIN GLARGINE [Concomitant]
     Active Substance: INSULIN GLARGINE
     Dates: start: 20210826
  12. INSULIN REGULAR [Concomitant]
     Active Substance: INSULIN NOS
     Dates: start: 20210825
  13. LIDOCAINE PATCH (AKA LIDODERM) [Concomitant]
     Dates: start: 20210821
  14. OLUMIANT [Suspect]
     Active Substance: BARICITINIB
     Indication: COVID-19
     Route: 048
     Dates: start: 20210820, end: 20210829
  15. ACETAMINOPHEN. [Concomitant]
     Active Substance: ACETAMINOPHEN
     Dates: start: 20210819, end: 20210902
  16. ALBUTEROL?IPRATROPIUM [Concomitant]
     Active Substance: ALBUTEROL\IPRATROPIUM
     Dates: start: 20210819
  17. DEXMEDETOMIDINE. [Concomitant]
     Active Substance: DEXMEDETOMIDINE
     Dates: start: 20210824, end: 20210824
  18. MIDAZOLAM. [Concomitant]
     Active Substance: MIDAZOLAM
     Dates: start: 20210824
  19. ATORVASTATIN [Concomitant]
     Active Substance: ATORVASTATIN
     Dates: start: 20210819, end: 20210901
  20. CHLORHEXIDINE [Concomitant]
     Active Substance: CHLORHEXIDINE
     Dates: start: 20210824
  21. DEXAMETHASONE. [Concomitant]
     Active Substance: DEXAMETHASONE
     Dates: start: 20210819, end: 20210828
  22. FENTANYL. [Concomitant]
     Active Substance: FENTANYL
     Dates: start: 20210825
  23. MELATONIN [Concomitant]
     Active Substance: MELATONIN
     Dates: start: 20210821, end: 20210901

REACTIONS (3)
  - Pneumonia [None]
  - Staphylococcal infection [None]
  - Sputum culture positive [None]

NARRATIVE: CASE EVENT DATE: 20210829
